FAERS Safety Report 19815111 (Version 4)
Quarter: 2022Q1

REPORT INFORMATION
  Report Type: Spontaneous
  Country: US (occurrence: US)
  Receive Date: 20210910
  Receipt Date: 20220124
  Transmission Date: 20220424
  Serious: Yes (Other)
  Sender: FDA-Public Use
  Company Number: US-PFIZER INC-202100991435

PATIENT
  Age: 67 Year
  Sex: Male
  Weight: 102 kg

DRUGS (1)
  1. XELJANZ XR [Suspect]
     Active Substance: TOFACITINIB CITRATE
     Indication: Rheumatoid arthritis
     Dosage: 11 MG, 1X/DAY
     Route: 048
     Dates: start: 202106

REACTIONS (10)
  - Atrial flutter [Unknown]
  - Heart rate increased [Unknown]
  - Upper gastrointestinal haemorrhage [Unknown]
  - Atrial fibrillation [Unknown]
  - Fatigue [Unknown]
  - Ulcer [Unknown]
  - Arthralgia [Unknown]
  - Joint stiffness [Unknown]
  - Gait disturbance [Unknown]
  - Loss of personal independence in daily activities [Unknown]
